FAERS Safety Report 16396003 (Version 3)
Quarter: 2020Q4

REPORT INFORMATION
  Report Type: Report from Study
  Country: US (occurrence: US)
  Receive Date: 20190605
  Receipt Date: 20201224
  Transmission Date: 20210113
  Serious: Yes (Hospitalization, Other)
  Sender: FDA-Public Use
  Company Number: US-SHIRE-US201917588

PATIENT
  Age: 37 Year
  Sex: Male

DRUGS (2)
  1. HUMAN NORMAL IMMUNOGLOBULIN; LIQUID [Suspect]
     Active Substance: HUMAN IMMUNOGLOBULIN G
     Indication: PRIMARY IMMUNODEFICIENCY SYNDROME
     Dosage: UNK
     Route: 042
  2. HUMAN NORMAL IMMUNOGLOBULIN; LIQUID [Suspect]
     Active Substance: HUMAN IMMUNOGLOBULIN G
     Dosage: 55 GRAM
     Route: 042

REACTIONS (6)
  - Gastroenteritis salmonella [Unknown]
  - Incorrect drug administration rate [Unknown]
  - Infection [Unknown]
  - Inability to afford medication [Unknown]
  - Infusion related reaction [Unknown]
  - Shock [Unknown]

NARRATIVE: CASE EVENT DATE: 20190528
